FAERS Safety Report 8884118 (Version 1)
Quarter: 2012Q4

REPORT INFORMATION
  Report Type: 
  Country: US (occurrence: US)
  Receive Date: 20121102
  Receipt Date: 20121102
  Transmission Date: 20130627
  Serious: No
  Sender: FDA-Public Use
  Company Number: US-ASTRAZENECA-2012SE15204

PATIENT
  Age: 50 Year
  Sex: Male
  Weight: 74.8 kg

DRUGS (3)
  1. CRESTOR [Suspect]
     Indication: BLOOD CHOLESTEROL ABNORMAL
     Route: 048
  2. DIURETIC [Concomitant]
  3. IMMUNOSUPPRESANT [Concomitant]

REACTIONS (6)
  - Oedema peripheral [Not Recovered/Not Resolved]
  - Oedema peripheral [Not Recovered/Not Resolved]
  - Drug intolerance [Unknown]
  - Asthenia [Unknown]
  - Off label use [Unknown]
  - Drug dose omission [Unknown]
